FAERS Safety Report 10338288 (Version 1)
Quarter: 2014Q3

REPORT INFORMATION
  Report Type: Spontaneous
  Country: US (occurrence: None)
  Receive Date: 20140723
  Receipt Date: 20140723
  Transmission Date: 20150326
  Serious: No
  Sender: FDA-Public Use
  Company Number: None

PATIENT
  Age: 23 Year
  Sex: Female

DRUGS (1)
  1. BANANA BOAT SPORT PERFORMANCE COOL ZONE [Suspect]
     Active Substance: AVOBENZONE\OCTOCRYLENE\OXYBENZONE
     Dates: start: 20140711

REACTIONS (3)
  - Burns second degree [None]
  - Sunburn [None]
  - Burns first degree [None]

NARRATIVE: CASE EVENT DATE: 20140711
